FAERS Safety Report 22270156 (Version 1)
Quarter: 2023Q2

REPORT INFORMATION
  Report Type: Spontaneous
  Country: DE (occurrence: DE)
  Receive Date: 20230501
  Receipt Date: 20230501
  Transmission Date: 20230722
  Serious: Yes (Congenital Anomaly)
  Sender: FDA-Public Use
  Company Number: DE-EMBRYOTOX-202203908

PATIENT
  Age: 1 Day
  Sex: Male
  Weight: 2.225 kg

DRUGS (11)
  1. FOSFOMYCIN [Concomitant]
     Active Substance: FOSFOMYCIN
     Indication: Urinary tract infection
     Route: 064
     Dates: start: 20220317, end: 20220324
  2. NITROFURANTOIN [Concomitant]
     Active Substance: NITROFURANTOIN
     Indication: Urinary tract infection
     Dosage: 200 [MG/D ] 2 SEPARATED DOSES
     Route: 064
     Dates: start: 20220401, end: 20220405
  3. OXYTOCIN [Concomitant]
     Active Substance: OXYTOCIN
     Indication: Labour induction
     Route: 064
     Dates: start: 20220626, end: 20220626
  4. BUTYLSCOPOLAMINE BROMIDE [Concomitant]
     Active Substance: BUTYLSCOPOLAMINE BROMIDE
     Indication: Labour pain
     Dosage: 10 [MG/D ]
     Route: 064
     Dates: start: 20220626, end: 20220626
  5. Comirnaty monovalent (BioNTech/Pfizer) [Concomitant]
     Indication: COVID-19 immunisation
     Dosage: 30 [?G/D ]/ 3RD VACCINATION
     Route: 064
     Dates: start: 20220127, end: 20220127
  6. MISOPROSTOL [Concomitant]
     Active Substance: MISOPROSTOL
     Indication: Labour induction
     Dosage: 75 [?G/TOTAL ]
     Route: 064
     Dates: start: 20220625, end: 20220626
  7. DINOPROSTONE [Concomitant]
     Active Substance: DINOPROSTONE
     Indication: Labour induction
     Route: 064
     Dates: start: 20220624, end: 20220624
  8. CLOTRIMAZOLE [Concomitant]
     Active Substance: CLOTRIMAZOLE
     Indication: Vulvovaginal mycotic infection
     Dosage: 500 [MG/D ]/ THREE TIMES IN PREGNANCY
     Route: 064
  9. CLINDAMYCIN [Concomitant]
     Active Substance: CLINDAMYCIN
     Indication: Infection prophylaxis
     Dosage: 1200 [MG/D ]
     Route: 064
     Dates: start: 20220626, end: 20220626
  10. CLOTRIMAZOLE [Concomitant]
     Active Substance: CLOTRIMAZOLE
     Indication: Vulvovaginal mycotic infection
     Route: 064
  11. PROGESTERONE [Suspect]
     Active Substance: PROGESTERONE
     Indication: Abortion threatened
     Route: 064
     Dates: start: 20211202, end: 20220113

REACTIONS (2)
  - Hypospadias [Not Recovered/Not Resolved]
  - Foetal exposure during pregnancy [Unknown]

NARRATIVE: CASE EVENT DATE: 20220601
